FAERS Safety Report 7047417-7 (Version None)
Quarter: 2010Q4

REPORT INFORMATION
  Report Type: 
  Country: None (occurrence: None)
  Receive Date: 20101015
  Receipt Date: 20101008
  Transmission Date: 20110411
  Serious: Yes (Other)
  Sender: FDA-Public Use
  Company Number: DE-ROCHE-733116

PATIENT
  Age: 11 Year
  Sex: Male

DRUGS (4)
  1. MYCOPHENOLATE MOFETIL [Suspect]
     Dosage: TROUGH LEVELS: 7.6 UG/ML
     Route: 065
     Dates: start: 20030101, end: 20070101
  2. PREDNISOLONE [Suspect]
     Route: 065
     Dates: start: 20030101
  3. SIROLIMUS [Suspect]
     Route: 065
     Dates: start: 20030101
  4. CYCLOSPORINE [Suspect]
     Route: 065
     Dates: start: 20030101, end: 20030101

REACTIONS (2)
  - NEPHROPATHY TOXIC [None]
  - PROGRESSIVE MULTIFOCAL LEUKOENCEPHALOPATHY [None]
